FAERS Safety Report 8816129 (Version 1)
Quarter: 2012Q4

REPORT INFORMATION
  Report Type: 
  Country: US (occurrence: US)
  Receive Date: 20120929
  Receipt Date: 20120929
  Transmission Date: 20130627
  Serious: No
  Sender: FDA-Public Use
  Company Number: US-009507513-1209USA005706

PATIENT
  Age: 56 Year
  Sex: Female

DRUGS (2)
  1. SAPHRIS [Suspect]
     Route: 060
  2. LITHIUM [Concomitant]

REACTIONS (1)
  - Tooth discolouration [Unknown]
